FAERS Safety Report 17754256 (Version 3)
Quarter: 2020Q2

REPORT INFORMATION
  Report Type: Report from Study
  Country: None (occurrence: BE)
  Receive Date: 20200507
  Receipt Date: 20200520
  Transmission Date: 20200714
  Serious: Yes (Hospitalization)
  Sender: FDA-Public Use
  Company Number: BE-ABBVIE-20K-013-3394300-00

PATIENT
  Sex: Female

DRUGS (3)
  1. DUODOPA [Suspect]
     Active Substance: CARBIDOPA\LEVODOPA
     Indication: PARKINSON^S DISEASE
     Dosage: UNKNOWN DOSAGES
     Route: 050
     Dates: start: 20071030, end: 20190131
  2. DUODOPA [Suspect]
     Active Substance: CARBIDOPA\LEVODOPA
     Dosage: MD= 0ML, CD= 3.6ML/HR DURING 16HRS, ED= 2.0ML, ND= 3.4ML/HR FOR 8HRS
     Route: 050
     Dates: start: 20200430
  3. DUODOPA [Suspect]
     Active Substance: CARBIDOPA\LEVODOPA
     Dosage: MD= 0ML, CD= 3.6ML/HR DURING 16HRS, ED= 2.0ML, ND= 3.4ML/HR FOR 8HRS
     Route: 050
     Dates: start: 20190131, end: 20200429

REACTIONS (3)
  - Device dislocation [Recovered/Resolved]
  - Fall [Recovered/Resolved]
  - Haemorrhage [Recovered/Resolved]

NARRATIVE: CASE EVENT DATE: 20200429
